FAERS Safety Report 5424937-X (Version None)
Quarter: 2007Q3

REPORT INFORMATION
  Report Type: 
  Country: None (occurrence: None)
  Receive Date: 20070824
  Receipt Date: 20070817
  Transmission Date: 20080115
  Serious: Yes (Hospitalization)
  Sender: FDA-Public Use
  Company Number: A0655108A

PATIENT
  Age: 73 Year
  Sex: Female

DRUGS (9)
  1. AVANDIA [Suspect]
     Dosage: 8MG IN THE MORNING
     Route: 048
     Dates: start: 20051201, end: 20070501
  2. LASIX [Concomitant]
     Dosage: 40MG TWICE PER DAY
  3. LEXAPRO [Concomitant]
     Dosage: 20MG IN THE MORNING
  4. NIFEREX [Concomitant]
     Dosage: 150MG IN THE MORNING
  5. OSCAL D [Concomitant]
  6. K-DUR 10 [Concomitant]
     Dosage: 40MEQ TWICE PER DAY
     Route: 048
  7. PROTONIX [Concomitant]
     Dosage: 40MG IN THE MORNING
  8. SIMVASTATIN [Concomitant]
     Dosage: 20MG AT NIGHT
  9. SENOKOT [Concomitant]
     Indication: CONSTIPATION

REACTIONS (11)
  - ABASIA [None]
  - ASTHENIA [None]
  - CHEST PAIN [None]
  - CONDITION AGGRAVATED [None]
  - COORDINATION ABNORMAL [None]
  - FATIGUE [None]
  - LETHARGY [None]
  - PERICARDIAL EFFUSION [None]
  - PERICARDITIS [None]
  - PLEURAL EFFUSION [None]
  - STAPHYLOCOCCAL INFECTION [None]
